FAERS Safety Report 7399101-8 (Version None)
Quarter: 2011Q2

REPORT INFORMATION
  Report Type: 
  Country: None (occurrence: None)
  Receive Date: 20110407
  Receipt Date: 20110324
  Transmission Date: 20111010
  Serious: Yes (Hospitalization)
  Sender: FDA-Public Use
  Company Number: FR-CELGENEUS-056-50794-10052542

PATIENT
  Sex: Male
  Weight: 75 kg

DRUGS (7)
  1. VIDAZA [Suspect]
  2. REVLIMID [Suspect]
  3. CIFLOX [Concomitant]
     Dosage: 1 GRAM
     Route: 048
     Dates: start: 20100518, end: 20100521
  4. REVLIMID [Suspect]
     Dosage: 5 MILLIGRAM
     Route: 048
     Dates: start: 20100506, end: 20100526
  5. GRANOCYTE 34 [Concomitant]
     Dosage: .5 DOSAGE FORMS
     Route: 058
     Dates: start: 20100506, end: 20100521
  6. AUGMENTIN [Concomitant]
     Dosage: 3 GRAM
     Route: 048
     Dates: start: 20100518, end: 20100521
  7. VIDAZA [Suspect]
     Indication: ACUTE MYELOID LEUKAEMIA
     Dosage: 75 MILLIGRAM/SQ. METER
     Route: 058
     Dates: start: 20100506, end: 20100526

REACTIONS (2)
  - FEBRILE BONE MARROW APLASIA [None]
  - INTERSTITIAL LUNG DISEASE [None]
